FAERS Safety Report 6427408-7 (Version None)
Quarter: 2009Q4

REPORT INFORMATION
  Report Type: 
  Country: None (occurrence: None)
  Receive Date: 20091104
  Receipt Date: 20091022
  Transmission Date: 20100525
  Serious: Yes (Hospitalization)
  Sender: FDA-Public Use
  Company Number: US-PFIZER INC-2009288287

PATIENT
  Sex: Female
  Weight: 122.46 kg

DRUGS (1)
  1. DILANTIN [Suspect]
     Indication: CONVULSION
     Route: 048

REACTIONS (4)
  - ANAEMIA [None]
  - DEEP VEIN THROMBOSIS [None]
  - INTRACARDIAC THROMBUS [None]
  - PULMONARY THROMBOSIS [None]
